FAERS Safety Report 9657491 (Version 1)
Quarter: 2013Q4

REPORT INFORMATION
  Report Type: Spontaneous
  Country: US (occurrence: US)
  Receive Date: 20131030
  Receipt Date: 20131030
  Transmission Date: 20140711
  Serious: Yes (Other)
  Sender: FDA-Public Use
  Company Number: US-NAPPMUNDI-USA-2011-0078728

PATIENT
  Age: 69 Year
  Sex: Female

DRUGS (1)
  1. OXYCONTIN TABLETS [Suspect]
     Indication: PAIN

REACTIONS (9)
  - Drug dependence [Unknown]
  - Drug withdrawal syndrome [Unknown]
  - Feeling hot [Unknown]
  - Hyperhidrosis [Unknown]
  - Nervousness [Unknown]
  - Vomiting [Unknown]
  - Nausea [Unknown]
  - Crying [Unknown]
  - Intentional drug misuse [Unknown]
